FAERS Safety Report 18527712 (Version 1)
Quarter: 2020Q4

REPORT INFORMATION
  Report Type: Report from Study
  Country: US (occurrence: US)
  Receive Date: 20201120
  Receipt Date: 20201120
  Transmission Date: 20210114
  Serious: Yes (Death, Other)
  Sender: FDA-Public Use
  Company Number: US-CHIESI-2020CHF05581

PATIENT
  Age: 18 Year
  Sex: Male
  Weight: 37 kg

DRUGS (2)
  1. DEFERIPRONE [Suspect]
     Active Substance: DEFERIPRONE
     Indication: HAEMOCHROMATOSIS
  2. DEFERIPRONE [Suspect]
     Active Substance: DEFERIPRONE
     Indication: APLASIA PURE RED CELL
     Dosage: 19 MILLIGRAM/KILOGRAM, TID
     Route: 048
     Dates: start: 20191018, end: 20201014

REACTIONS (2)
  - Sepsis [Fatal]
  - Gastrointestinal necrosis [Fatal]

NARRATIVE: CASE EVENT DATE: 20201014
